FAERS Safety Report 10958090 (Version 1)
Quarter: 2015Q1

REPORT INFORMATION
  Report Type: Spontaneous
  Country: US (occurrence: CA)
  Receive Date: 20150326
  Receipt Date: 20150326
  Transmission Date: 20150721
  Serious: Yes (Hospitalization, Other)
  Sender: FDA-Public Use
  Company Number: US-MYLANLABS-2015M1009136

PATIENT

DRUGS (2)
  1. METHOTREXATE [Suspect]
     Active Substance: METHOTREXATE
     Indication: POLYARTHRITIS
     Dosage: UNK DF, QW
     Dates: start: 201206
  2. METHOTREXATE [Suspect]
     Active Substance: METHOTREXATE
     Indication: PAIN
     Dosage: UNK
     Dates: start: 20120807, end: 20120815

REACTIONS (6)
  - Extra dose administered [Not Recovered/Not Resolved]
  - Toxicity to various agents [Recovered/Resolved with Sequelae]
  - Arthropathy [Not Recovered/Not Resolved]
  - Mental disorder [None]
  - Haemorrhage [Recovered/Resolved with Sequelae]
  - Pulmonary embolism [Recovered/Resolved with Sequelae]

NARRATIVE: CASE EVENT DATE: 201208
